FAERS Safety Report 13640141 (Version 1)
Quarter: 2017Q2

REPORT INFORMATION
  Report Type: Report from Study
  Country: CA (occurrence: CA)
  Receive Date: 20170609
  Receipt Date: 20170609
  Transmission Date: 20170830
  Serious: Yes (Hospitalization)
  Sender: FDA-Public Use
  Company Number: CA-HLSUS-2016-CA-000768

PATIENT
  Age: 71 Year
  Sex: Female

DRUGS (4)
  1. PALIPERIDONE. [Concomitant]
     Active Substance: PALIPERIDONE
     Indication: SCHIZOAFFECTIVE DISORDER
     Dosage: 100 MG TWICE MONTHLY
     Route: 030
     Dates: start: 20160912, end: 20161109
  2. VALPROATE [Concomitant]
     Active Substance: VALPROIC ACID
  3. CLOZARIL [Suspect]
     Active Substance: CLOZAPINE
     Indication: SCHIZOAFFECTIVE DISORDER
     Dosage: 12.5 MG ONCE DAILY
     Route: 048
     Dates: start: 20161104, end: 20161109
  4. BENZTROPINE [Concomitant]
     Active Substance: BENZTROPINE

REACTIONS (13)
  - Irritability [Recovered/Resolved]
  - Diarrhoea [Unknown]
  - Adverse drug reaction [Recovered/Resolved]
  - White blood cell count decreased [Unknown]
  - Myocarditis [Unknown]
  - Depressed level of consciousness [Recovered/Resolved]
  - Malaise [Recovered/Resolved]
  - Somnolence [Recovered/Resolved]
  - Fatigue [Recovered/Resolved]
  - Lethargy [Recovered/Resolved]
  - Tachycardia [Unknown]
  - Sedation [Recovered/Resolved]
  - Neutrophil count decreased [Unknown]

NARRATIVE: CASE EVENT DATE: 20161110
